FAERS Safety Report 24022508 (Version 2)
Quarter: 2024Q3

REPORT INFORMATION
  Report Type: Report from Study
  Country: AU (occurrence: AU)
  Receive Date: 20240627
  Receipt Date: 20240710
  Transmission Date: 20241017
  Serious: No
  Sender: ROCHE
  Company Number: AU-ROCHE-3209987

PATIENT
  Age: 60 Year
  Sex: Male
  Weight: 86.7 kg

DRUGS (15)
  1. ALECTINIB [Suspect]
     Active Substance: ALECTINIB
     Indication: Lung cancer metastatic
     Route: 048
     Dates: start: 20220118
  2. ALECTINIB [Suspect]
     Active Substance: ALECTINIB
     Route: 048
     Dates: start: 20190805
  3. CORE MINERALS [Concomitant]
     Dosage: 2 TABLET
     Route: 048
  4. PROFLAVANOL C 100 [Concomitant]
     Dosage: 2 TABLET
     Route: 048
  5. HEPAPLUS [Concomitant]
     Dosage: 1 TABLET
     Route: 048
  6. BIOMEGA [Concomitant]
     Active Substance: CAPSAICIN
     Dosage: 2 TABLET
     Route: 048
  7. PALMETTO PLUS [Concomitant]
     Dosage: 1 TABLET
     Route: 048
  8. PROCOSAMINE [Concomitant]
     Dosage: 3 TABLET
     Route: 048
  9. MAGNECAL D [Concomitant]
     Dosage: 2 TABLET
     Route: 048
  10. PROBIOTIC (UNK INGREDIENTS) [Concomitant]
     Route: 048
  11. VITAMIN D [Concomitant]
     Active Substance: VITAMIN D NOS
     Dosage: 1 TABLET
     Route: 048
  12. LORLATINIB [Concomitant]
     Active Substance: LORLATINIB
     Indication: Metastasis
     Dates: start: 20230222
  13. LORLATINIB [Concomitant]
     Active Substance: LORLATINIB
     Dates: start: 20230222, end: 20230508
  14. ROSUVASTATIN [Concomitant]
     Active Substance: ROSUVASTATIN
     Indication: Hyperlipidaemia
     Route: 048
     Dates: start: 20240122
  15. EZETIMIBE [Concomitant]
     Active Substance: EZETIMIBE
     Indication: Hyperlipidaemia
     Route: 048
     Dates: start: 20240122

REACTIONS (3)
  - Blood creatine phosphokinase increased [Not Recovered/Not Resolved]
  - Muscle spasms [Not Recovered/Not Resolved]
  - Blood cholesterol increased [Not Recovered/Not Resolved]

NARRATIVE: CASE EVENT DATE: 20221001
